FAERS Safety Report 21989561 (Version 2)
Quarter: 2023Q1

REPORT INFORMATION
  Report Type: Spontaneous
  Country: US (occurrence: US)
  Receive Date: 20230214
  Receipt Date: 20230216
  Transmission Date: 20230418
  Serious: No
  Sender: FDA-Public Use
  Company Number: US-ALKERMES INC.-ALK-2023-000575

PATIENT
  Age: 33 Year
  Sex: Male
  Weight: 95.238 kg

DRUGS (5)
  1. VIVITROL [Suspect]
     Active Substance: NALTREXONE
     Indication: Drug dependence
     Dosage: 380 MILLIGRAM, QMO
     Route: 030
     Dates: start: 202209
  2. CANNABIS SATIVA SUBSP. INDICA TOP [Suspect]
     Active Substance: CANNABIS SATIVA SUBSP. INDICA TOP
     Indication: Product used for unknown indication
     Dosage: UNKNOWN
     Route: 065
  3. UNSPECIFIED INGREDIENT [Suspect]
     Active Substance: UNSPECIFIED INGREDIENT
     Indication: Product used for unknown indication
     Dosage: UNKNOWN
     Route: 065
  4. NALTREXONE [Concomitant]
     Active Substance: NALTREXONE
     Indication: Drug dependence
     Dosage: UNK
     Route: 048
  5. UNSPECIFIED INGREDIENT [Concomitant]
     Active Substance: UNSPECIFIED INGREDIENT
     Indication: Product used for unknown indication

REACTIONS (5)
  - Substance use [Not Recovered/Not Resolved]
  - Drug screen positive [Unknown]
  - Drug dependence [Not Recovered/Not Resolved]
  - Treatment noncompliance [Unknown]
  - Substance dependence [Not Recovered/Not Resolved]

NARRATIVE: CASE EVENT DATE: 20221101
